FAERS Safety Report 10896134 (Version 1)
Quarter: 2015Q1

REPORT INFORMATION
  Report Type: Other
  Country: FR (occurrence: FR)
  Receive Date: 20150309
  Receipt Date: 20150309
  Transmission Date: 20150721
  Serious: Yes (Hospitalization)
  Sender: FDA-Public Use
  Company Number: FR-OPTIMER-20150055

PATIENT
  Sex: Female

DRUGS (10)
  1. CLINDAMYCIN [Suspect]
     Active Substance: CLINDAMYCIN\CLINDAMYCIN PHOSPHATE
     Indication: INFECTION
     Dosage: 600 MG, TID
     Route: 048
     Dates: start: 20131112, end: 20140212
  2. GENTAMICIN. [Concomitant]
     Active Substance: GENTAMICIN
  3. AUGMENTIN [Concomitant]
     Active Substance: AMOXICILLIN\CLAVULANATE POTASSIUM
  4. BACTRIM [Suspect]
     Active Substance: SULFAMETHOXAZOLE\TRIMETHOPRIM
     Indication: INFECTION
     Dosage: 2 DF, QD
     Route: 048
     Dates: start: 20131112, end: 20140212
  5. AMOXICILLIN. [Suspect]
     Active Substance: AMOXICILLIN
     Indication: PYELONEPHRITIS
     Dosage: 4 DF, QD
     Route: 048
     Dates: start: 20140429, end: 20140502
  6. VANCOMYCIN [Concomitant]
     Active Substance: VANCOMYCIN
  7. DIFICLIR [Suspect]
     Active Substance: FIDAXOMICIN
     Indication: CLOSTRIDIUM DIFFICILE COLITIS
     Dosage: UNK
     Route: 048
     Dates: start: 20140427, end: 20140507
  8. DIFICLIR [Suspect]
     Active Substance: FIDAXOMICIN
     Dosage: 1 TAB, QD FOR 4 DAYS THEN ONE TABLET EVERY OTHER DAYUNK
     Dates: end: 20140619
  9. FLAGYL [Suspect]
     Active Substance: METRONIDAZOLE\METRONIDAZOLE HYDROCHLORIDE
     Indication: PSEUDOMEMBRANOUS COLITIS
     Dosage: 3 DF, QD
     Route: 048
     Dates: start: 20140323, end: 20140423
  10. CEFTRIAXONE. [Suspect]
     Active Substance: CEFTRIAXONE
     Indication: PYELONEPHRITIS
     Dosage: 1 G, QD
     Route: 042
     Dates: start: 20140427, end: 20140428

REACTIONS (4)
  - Clostridium difficile infection [Recovered/Resolved]
  - Disease recurrence [Recovered/Resolved]
  - Pseudomembranous colitis [Recovered/Resolved]
  - Off label use [Recovered/Resolved]
